FAERS Safety Report 6077899-9 (Version None)
Quarter: 2009Q1

REPORT INFORMATION
  Report Type: 
  Country: None (occurrence: None)
  Receive Date: 20090213
  Receipt Date: 20090206
  Transmission Date: 20090719
  Serious: Yes (Death, Other)
  Sender: FDA-Public Use
  Company Number: FI-PURDUE-USA_2009_0036761

PATIENT
  Age: 60 Year
  Sex: Female

DRUGS (3)
  1. OXYCODONE HCL [Suspect]
     Indication: PAIN
  2. FENTANYL [Suspect]
     Indication: PAIN
  3. OXYCODONE ORAL SOLUTION [Suspect]
     Indication: PAIN

REACTIONS (4)
  - DYSPHAGIA [None]
  - DYSPNOEA [None]
  - OVERDOSE [None]
  - WRONG TECHNIQUE IN DRUG USAGE PROCESS [None]
